FAERS Safety Report 10395238 (Version 1)
Quarter: 2014Q3

REPORT INFORMATION
  Report Type: Report from Study
  Country: US (occurrence: US)
  Receive Date: 20140820
  Receipt Date: 20140820
  Transmission Date: 20150326
  Serious: Yes (Other)
  Sender: FDA-Public Use
  Company Number: US-ROCHE-1451706

PATIENT
  Age: 59 Year
  Sex: Female

DRUGS (4)
  1. CELLCEPT [Suspect]
     Active Substance: MYCOPHENOLATE MOFETIL\MYCOPHENOLATE MOFETIL HYDROCHLORIDE
     Indication: MICROSCOPIC POLYANGIITIS
  2. RITUXAN [Suspect]
     Active Substance: RITUXIMAB
     Indication: MICROSCOPIC POLYANGIITIS
  3. CELLCEPT [Suspect]
     Active Substance: MYCOPHENOLATE MOFETIL\MYCOPHENOLATE MOFETIL HYDROCHLORIDE
     Indication: GRANULOMATOSIS WITH POLYANGIITIS
     Route: 065
  4. RITUXAN [Suspect]
     Active Substance: RITUXIMAB
     Indication: GRANULOMATOSIS WITH POLYANGIITIS
     Route: 042

REACTIONS (8)
  - Haemoptysis [Unknown]
  - Night sweats [Unknown]
  - Drug ineffective [Unknown]
  - Proteinuria [Unknown]
  - Weight decreased [Unknown]
  - Blood creatinine increased [Unknown]
  - Haematuria [Unknown]
  - Glomerulonephritis [Unknown]
